FAERS Safety Report 6298980-5 (Version None)
Quarter: 2009Q3

REPORT INFORMATION
  Report Type: 
  Country: None (occurrence: None)
  Receive Date: 20090806
  Receipt Date: 20090728
  Transmission Date: 20100115
  Serious: Yes (Other)
  Sender: FDA-Public Use
  Company Number: US-BAYER-200928831NA

PATIENT
  Age: 33 Year
  Sex: Female

DRUGS (1)
  1. MIRENA [Suspect]
     Indication: CONTRACEPTION
     Dosage: CONTINUOUS
     Route: 015
     Dates: start: 20090327, end: 20090327

REACTIONS (5)
  - DIARRHOEA [None]
  - HYPERHIDROSIS [None]
  - IUD MIGRATION [None]
  - PRESYNCOPE [None]
  - PROCEDURAL PAIN [None]
